FAERS Safety Report 22272413 (Version 1)
Quarter: 2023Q2

REPORT INFORMATION
  Report Type: Spontaneous
  Country: CA (occurrence: None)
  Receive Date: 20230502
  Receipt Date: 20230502
  Transmission Date: 20230722
  Serious: Yes (Death)
  Sender: FDA-Public Use
  Company Number: CA-ROCHE-3342003

PATIENT
  Age: 82 Year
  Sex: Female

DRUGS (15)
  1. RITUXIMAB [Suspect]
     Active Substance: RITUXIMAB
     Indication: Rheumatoid arthritis
     Route: 041
  2. CALCIUM [Concomitant]
     Active Substance: CALCIUM
  3. LEVOTHYROXINE SODIUM [Concomitant]
     Active Substance: LEVOTHYROXINE SODIUM
     Route: 065
  4. LOSEC [Concomitant]
     Active Substance: OMEPRAZOLE
  5. MAGNESIUM [Concomitant]
     Active Substance: MAGNESIUM
  6. PROPRANOLOL [Concomitant]
     Active Substance: PROPRANOLOL HYDROCHLORIDE
  7. RAMIPRIL [Concomitant]
     Active Substance: RAMIPRIL
  8. RANITIDINE [Concomitant]
     Active Substance: RANITIDINE
  9. ALBUTEROL [Concomitant]
     Active Substance: ALBUTEROL
  10. SENOKOT [Concomitant]
     Active Substance: SENNOSIDES
  11. TELMISARTAN [Concomitant]
     Active Substance: TELMISARTAN
  12. TRAMADOL HYDROCHLORIDE [Concomitant]
     Active Substance: TRAMADOL HYDROCHLORIDE
  13. TYLENOL EXTRA STRENGTH [Concomitant]
     Active Substance: ACETAMINOPHEN
  14. VITAMIN B12 [Concomitant]
     Active Substance: CYANOCOBALAMIN
  15. PROLIA [Concomitant]
     Active Substance: DENOSUMAB
     Route: 058

REACTIONS (1)
  - Death [Fatal]
